FAERS Safety Report 10414870 (Version 1)
Quarter: 2014Q2

REPORT INFORMATION
  Report Type: Spontaneous
  Country: US (occurrence: None)
  Receive Date: 20140604
  Receipt Date: 20140604
  Transmission Date: 20141212
  Serious: No
  Sender: FDA-Public Use
  Company Number: 163-POMAL-14033835

PATIENT
  Age: 56 Year
  Sex: Female
  Weight: 89.8 kg

DRUGS (1)
  1. POMALYST [Suspect]
     Route: 048
     Dates: start: 201311

REACTIONS (1)
  - Hepatic enzyme increased [None]
